FAERS Safety Report 5611893-4 (Version None)
Quarter: 2008Q1

REPORT INFORMATION
  Report Type: 
  Country: None (occurrence: None)
  Receive Date: 20080128
  Receipt Date: 20080114
  Transmission Date: 20080703
  Serious: Yes (Other)
  Sender: FDA-Public Use
  Company Number: 2008S1000657

PATIENT
  Age: 50 Year
  Sex: Female

DRUGS (6)
  1. BISOMERCK PLUS 10 MG/25 MG (NO PREF. NAME) [Suspect]
     Indication: DRUG USE FOR UNKNOWN INDICATION
     Dosage: 75 MG; ORAL
     Route: 048
     Dates: start: 20080112, end: 20080112
  2. ANAFRANIL [Suspect]
     Dosage: 300 MG; ORAL
     Route: 048
     Dates: start: 20080112, end: 20080112
  3. OPIPRAMOL-NEURAXPHARM (OPIPRAMOL HYDROCHLORIDE) [Suspect]
     Dosage: 400 MG; ORAL
     Route: 048
     Dates: start: 20080112, end: 20080112
  4. OPIPRAMOL (OPIPRAMOL) [Suspect]
     Dosage: 300 MG; ORAL
     Route: 048
     Dates: start: 20080112, end: 20080112
  5. PROTHIPENDYL (PROTHIPENDYL) [Suspect]
     Dosage: 240  MG; ORAL
     Route: 048
     Dates: start: 20080112, end: 20080112
  6. LITHIUM CARBONATE [Suspect]
     Dosage: 1800 MG; ORAL
     Route: 048
     Dates: start: 20080112, end: 20080112

REACTIONS (5)
  - GASTROINTESTINAL SOUNDS ABNORMAL [None]
  - HYPOTENSION [None]
  - LETHARGY [None]
  - MULTIPLE DRUG OVERDOSE INTENTIONAL [None]
  - SUICIDE ATTEMPT [None]
